FAERS Safety Report 13676741 (Version 7)
Quarter: 2018Q1

REPORT INFORMATION
  Report Type: Spontaneous
  Country: US (occurrence: US)
  Receive Date: 20170622
  Receipt Date: 20180314
  Transmission Date: 20180508
  Serious: Yes (Hospitalization, Other)
  Sender: FDA-Public Use
  Company Number: US-PFIZER INC-2017186579

PATIENT
  Age: 74 Year
  Sex: Female
  Weight: 98.43 kg

DRUGS (2)
  1. XELJANZ [Suspect]
     Active Substance: TOFACITINIB CITRATE
     Indication: RHEUMATOID ARTHRITIS
     Dosage: 5 MG, 1X/DAY
     Route: 048
     Dates: start: 2017
  2. XELJANZ [Suspect]
     Active Substance: TOFACITINIB CITRATE
     Dosage: 5 MG, 1X/DAY
     Route: 048
     Dates: start: 201706

REACTIONS (13)
  - Condition aggravated [Not Recovered/Not Resolved]
  - Body height decreased [Unknown]
  - Speech disorder [Unknown]
  - Condition aggravated [Unknown]
  - Fatigue [Unknown]
  - Memory impairment [Unknown]
  - Impaired driving ability [Unknown]
  - Loss of personal independence in daily activities [Unknown]
  - Pain [Recovered/Resolved]
  - Hypersomnia [Unknown]
  - Malaise [Recovered/Resolved]
  - Renal failure [Not Recovered/Not Resolved]
  - Diarrhoea [Recovered/Resolved]

NARRATIVE: CASE EVENT DATE: 20170711
